FAERS Safety Report 25023020 (Version 1)
Quarter: 2025Q1

REPORT INFORMATION
  Report Type: Spontaneous
  Country: FR (occurrence: FR)
  Receive Date: 20250228
  Receipt Date: 20250228
  Transmission Date: 20250409
  Serious: Yes (Life-Threatening, Hospitalization)
  Sender: MYLAN
  Company Number: None

PATIENT
  Age: 40 Year
  Sex: Male

DRUGS (8)
  1. PREGABALIN [Suspect]
     Active Substance: PREGABALIN
     Indication: Epilepsy
     Dosage: 150 MILLIGRAM, QD (150 MG IN THE MORNING)
     Dates: start: 20250130, end: 20250130
  2. PREGABALIN [Suspect]
     Active Substance: PREGABALIN
     Dosage: 150 MILLIGRAM, QD (150 MG IN THE MORNING)
     Route: 065
     Dates: start: 20250130, end: 20250130
  3. PREGABALIN [Suspect]
     Active Substance: PREGABALIN
     Dosage: 150 MILLIGRAM, QD (150 MG IN THE MORNING)
     Route: 065
     Dates: start: 20250130, end: 20250130
  4. PREGABALIN [Suspect]
     Active Substance: PREGABALIN
     Dosage: 150 MILLIGRAM, QD (150 MG IN THE MORNING)
     Dates: start: 20250130, end: 20250130
  5. TEGRETOL [Suspect]
     Active Substance: CARBAMAZEPINE
     Indication: Epilepsy
     Dosage: 800 MILLIGRAM, QD, SCORED TABLET (2 TABLETS OF 200 MG, MORNING AND EVENING)
     Dates: start: 20250130, end: 20250130
  6. TEGRETOL [Suspect]
     Active Substance: CARBAMAZEPINE
     Dosage: 800 MILLIGRAM, QD, SCORED TABLET (2 TABLETS OF 200 MG, MORNING AND EVENING)
     Route: 065
     Dates: start: 20250130, end: 20250130
  7. TEGRETOL [Suspect]
     Active Substance: CARBAMAZEPINE
     Dosage: 800 MILLIGRAM, QD, SCORED TABLET (2 TABLETS OF 200 MG, MORNING AND EVENING)
     Route: 065
     Dates: start: 20250130, end: 20250130
  8. TEGRETOL [Suspect]
     Active Substance: CARBAMAZEPINE
     Dosage: 800 MILLIGRAM, QD, SCORED TABLET (2 TABLETS OF 200 MG, MORNING AND EVENING)
     Dates: start: 20250130, end: 20250130

REACTIONS (2)
  - Toxicity to various agents [Recovered/Resolved]
  - Coma [Recovered/Resolved]

NARRATIVE: CASE EVENT DATE: 20250130
